FAERS Safety Report 13638061 (Version 2)
Quarter: 2017Q3

REPORT INFORMATION
  Report Type: Spontaneous
  Country: None (occurrence: FR)
  Receive Date: 20170609
  Receipt Date: 20170825
  Transmission Date: 20171127
  Serious: Yes (Hospitalization)
  Sender: FDA-Public Use
  Company Number: FR-MEDAC PHARMA, INC.-2021755

PATIENT
  Age: 46 Year
  Sex: Female

DRUGS (3)
  1. PREDNISONE. [Suspect]
     Active Substance: PREDNISONE
     Route: 048
     Dates: start: 201702
  2. FOLIC ACID. [Concomitant]
     Active Substance: FOLIC ACID
  3. METOJECT [Suspect]
     Active Substance: METHOTREXATE SODIUM
     Indication: VASCULITIS NECROTISING
     Route: 058
     Dates: start: 201702, end: 20170503

REACTIONS (2)
  - Intention tremor [Recovering/Resolving]
  - Resting tremor [Recovering/Resolving]

NARRATIVE: CASE EVENT DATE: 201704
